FAERS Safety Report 9290629 (Version 1)
Quarter: 2013Q2

REPORT INFORMATION
  Report Type: Spontaneous
  Country: CA (occurrence: CA)
  Receive Date: 20130515
  Receipt Date: 20130515
  Transmission Date: 20140414
  Serious: Yes (Other)
  Sender: FDA-Public Use
  Company Number: CA-ELI_LILLY_AND_COMPANY-CA201305002095

PATIENT
  Sex: Female

DRUGS (8)
  1. CYMBALTA [Suspect]
     Dosage: 30 MG, UNK
  2. ALEVE [Concomitant]
  3. ATIVAN [Concomitant]
  4. NORVASC [Concomitant]
  5. PREMARIN [Concomitant]
  6. PROMETRIUM [Concomitant]
  7. RAMIPRIL [Concomitant]
  8. TYLENOL ARTHRITIS [Concomitant]

REACTIONS (13)
  - Pharyngeal erythema [Unknown]
  - Cough [Unknown]
  - Diarrhoea [Unknown]
  - Dizziness [Unknown]
  - Dysgeusia [Unknown]
  - Dyspnoea [Unknown]
  - Eyelid oedema [Unknown]
  - Feeling abnormal [Unknown]
  - Formication [Unknown]
  - Increased upper airway secretion [Unknown]
  - Nausea [Unknown]
  - Nervousness [Unknown]
  - Oropharyngeal pain [Unknown]
